FAERS Safety Report 25334116 (Version 2)
Quarter: 2025Q2

REPORT INFORMATION
  Report Type: Spontaneous
  Country: US (occurrence: US)
  Receive Date: 20250520
  Receipt Date: 20250610
  Transmission Date: 20250717
  Serious: Yes (Other)
  Sender: CSL BEHRING
  Company Number: US-BEH-2025205329

PATIENT
  Age: 57 Year
  Sex: Female

DRUGS (19)
  1. HIZENTRA [Suspect]
     Active Substance: HUMAN IMMUNOGLOBULIN G
     Indication: Hypogammaglobulinaemia
     Dosage: 75 ML, QW
     Route: 058
     Dates: start: 20240710
  2. HIZENTRA [Suspect]
     Active Substance: HUMAN IMMUNOGLOBULIN G
     Dosage: 15 G, QW
     Route: 058
     Dates: start: 20240710
  3. AMITRIPTYLINE [Concomitant]
     Active Substance: AMITRIPTYLINE
  4. AMITRIPTYLINE [Concomitant]
     Active Substance: AMITRIPTYLINE
  5. AMPYRA [Concomitant]
     Active Substance: DALFAMPRIDINE
  6. BACLOFEN [Concomitant]
     Active Substance: BACLOFEN
  7. BACLOFEN [Concomitant]
     Active Substance: BACLOFEN
  8. DALFAMPRIDINE [Concomitant]
     Active Substance: DALFAMPRIDINE
  9. MAYZENT [Concomitant]
     Active Substance: SIPONIMOD
  10. METHENAMINE [Concomitant]
     Active Substance: METHENAMINE
  11. MYRBETRIQ [Concomitant]
     Active Substance: MIRABEGRON
  12. MYRBETRIQ [Concomitant]
     Active Substance: MIRABEGRON
  13. OMEPRAZOLE [Concomitant]
     Active Substance: OMEPRAZOLE
  14. SOLU-MEDROL [Concomitant]
     Active Substance: METHYLPREDNISOLONE SODIUM SUCCINATE
  15. TENOFOVIR [Concomitant]
     Active Substance: TENOFOVIR
  16. TRETINOIN [Concomitant]
     Active Substance: TRETINOIN
  17. VITAMIN B12 [Concomitant]
     Active Substance: CYANOCOBALAMIN
  18. VITAMIN C [Concomitant]
     Active Substance: ASCORBIC ACID
  19. VITAMIN D3 [Concomitant]
     Active Substance: CHOLECALCIFEROL

REACTIONS (2)
  - Drug ineffective [Unknown]
  - Infusion site haemorrhage [Unknown]
